FAERS Safety Report 25422379 (Version 1)
Quarter: 2025Q2

REPORT INFORMATION
  Report Type: Spontaneous
  Country: IT (occurrence: IT)
  Receive Date: 20250611
  Receipt Date: 20250611
  Transmission Date: 20250716
  Serious: Yes (Hospitalization)
  Sender: LEO PHARM
  Company Number: None

PATIENT
  Age: 80 Year
  Sex: Male
  Weight: 74 kg

DRUGS (9)
  1. ADBRY [Suspect]
     Active Substance: TRALOKINUMAB-LDRM
     Indication: Dermatitis atopic
     Dosage: 300 MG SUBCUTANEOUSLY EVERY 2 WEEKS.
     Route: 058
     Dates: start: 20250410, end: 20250424
  2. PRAMIPEXOLE [Concomitant]
     Active Substance: PRAMIPEXOLE
     Indication: Depression
     Dosage: CONTINUOUS THERAPY, 0.18 MG DAILY
     Route: 048
  3. FUROSEMIDE\SPIRONOLACTONE [Concomitant]
     Active Substance: FUROSEMIDE\SPIRONOLACTONE
     Indication: Renal failure
     Route: 048
  4. ATORVASTATIN [Concomitant]
     Active Substance: ATORVASTATIN
     Indication: Dyslipidaemia
     Route: 048
  5. ESCITALOPRAM [Concomitant]
     Active Substance: ESCITALOPRAM OXALATE
     Indication: Depression
     Dosage: CONTINUOUS THERAPY, 10 MG DAILY
     Route: 048
  6. LASIX [Concomitant]
     Active Substance: FUROSEMIDE
     Indication: Renal failure
     Dosage: CONTINUOUS THERAPY, 25 MG DAILY
     Route: 048
  7. ASPIRIN [Concomitant]
     Active Substance: ASPIRIN
     Indication: Prophylaxis
     Dosage: CONTINUOUS THERAPY, 100 MG DAILY
     Route: 048
  8. BISOPROLOL [Concomitant]
     Active Substance: BISOPROLOL
     Indication: Hypertension
     Route: 048
  9. HYDROCHLOROTHIAZIDE\TELMISARTAN [Concomitant]
     Active Substance: HYDROCHLOROTHIAZIDE\TELMISARTAN
     Indication: Hypertension
     Dosage: CHRONIC THERAPY, 40+12.5 MG DAILY
     Route: 048

REACTIONS (4)
  - Diarrhoea [Recovering/Resolving]
  - Erythema [Recovering/Resolving]
  - Chronic kidney disease [Recovering/Resolving]
  - Eosinophilia [Recovering/Resolving]

NARRATIVE: CASE EVENT DATE: 20250424
